FAERS Safety Report 8938877 (Version 1)
Quarter: 2012Q4

REPORT INFORMATION
  Report Type: 
  Country: US (occurrence: US)
  Receive Date: 20121203
  Receipt Date: 20121203
  Transmission Date: 20130627
  Serious: No
  Sender: FDA-Public Use
  Company Number: US-PFIZER INC-2012299150

PATIENT
  Age: 71 Year
  Sex: Male

DRUGS (1)
  1. VFEND [Suspect]
     Indication: MYELOID LEUKEMIA, ACUTE
     Dosage: 200 mg, 2x/day, 1.5 tablets

REACTIONS (2)
  - Drug ineffective [Unknown]
  - Off label use [Unknown]
